FAERS Safety Report 20024299 (Version 1)
Quarter: 2021Q4

REPORT INFORMATION
  Report Type: Spontaneous
  Country: US (occurrence: US)
  Receive Date: 20211102
  Receipt Date: 20211102
  Transmission Date: 20220303
  Serious: Yes (Hospitalization, Other)
  Sender: FDA-Public Use
  Company Number: US-MLMSERVICE-20211014-3164650-1

PATIENT
  Age: 48 Year
  Sex: Female

DRUGS (3)
  1. DEXTROSE [Suspect]
     Active Substance: DEXTROSE
     Indication: Hypoglycaemia
     Dosage: 2 AMPULES OF 50 ML (25 G) 50% DEXTROSE THROUGH A 22-GAUGE ANTECUBITAL PERIPHERAL IV LINE
     Route: 042
  2. FOLIC ACID [Concomitant]
     Active Substance: FOLIC ACID
     Dosage: UNK
  3. VITAMIN B1 [Concomitant]
     Active Substance: THIAMINE HYDROCHLORIDE
     Dosage: UNK

REACTIONS (5)
  - Peripheral swelling [Recovering/Resolving]
  - Peripheral swelling [Recovering/Resolving]
  - Pulse absent [Recovering/Resolving]
  - Blister [Recovering/Resolving]
  - Administration site extravasation [Recovering/Resolving]
